FAERS Safety Report 8267250-8 (Version None)
Quarter: 2012Q2

REPORT INFORMATION
  Report Type: 
  Country: None (occurrence: None)
  Receive Date: 20120409
  Receipt Date: 20120329
  Transmission Date: 20120825
  Serious: Yes (Other)
  Sender: FDA-Public Use
  Company Number: US-BAYER-2012-031291

PATIENT
  Age: 23 Year
  Sex: Female

DRUGS (4)
  1. DROSPIRENONE AND ETHINYL ESTRADIOL [Suspect]
  2. PHENAZOPYRIDINE HCL TAB [Concomitant]
     Dosage: 100 MG, UNK
     Dates: start: 20080613
  3. YASMIN [Suspect]
  4. LEXAPRO [Concomitant]
     Dosage: 10 MG, QD

REACTIONS (1)
  - VENOUS THROMBOSIS [None]
